FAERS Safety Report 5162429-6 (Version None)
Quarter: 2006Q4

REPORT INFORMATION
  Report Type: 
  Country: None (occurrence: None)
  Receive Date: 20061128
  Receipt Date: 20061128
  Transmission Date: 20070319
  Serious: No
  Sender: FDA-Public Use
  Company Number: None

PATIENT
  Age: 57 Year
  Sex: Male
  Weight: 165.5629 kg

DRUGS (6)
  1. IODONATED BARIUM [Suspect]
  2. FOSINOPRIL SODIUM [Concomitant]
  3. CLOPIDOGREL [Concomitant]
  4. METFORMIN HCL [Concomitant]
  5. METOPROLOL SUCCINATE [Concomitant]
  6. SIMVASTAT [Concomitant]

REACTIONS (2)
  - RASH [None]
  - URTICARIA [None]
